FAERS Safety Report 19275240 (Version 43)
Quarter: 2024Q4

REPORT INFORMATION
  Report Type: Spontaneous
  Country: CA (occurrence: CA)
  Receive Date: 20210519
  Receipt Date: 20241121
  Transmission Date: 20250115
  Serious: Yes (Death, Life-Threatening, Hospitalization, Other)
  Sender: SANOFI AVENTIS
  Company Number: CA-SA-SAC20210518000252

PATIENT
  Age: 65 Year
  Sex: Male

DRUGS (349)
  1. INSULIN GLARGINE [Suspect]
     Active Substance: INSULIN GLARGINE
     Indication: Product used for unknown indication
     Dosage: 1 DF, QD
     Route: 058
  2. INSULIN GLARGINE [Suspect]
     Active Substance: INSULIN GLARGINE
     Dosage: 1 DF, ONCE DAILY
     Route: 058
  3. FLOMAX [Suspect]
     Active Substance: TAMSULOSIN HYDROCHLORIDE
     Indication: Product used for unknown indication
     Dosage: 1 DF, QD
     Route: 065
  4. FLOMAX [Suspect]
     Active Substance: TAMSULOSIN HYDROCHLORIDE
     Dosage: 1 DF, QW
     Route: 065
  5. FLOMAX [Suspect]
     Active Substance: TAMSULOSIN HYDROCHLORIDE
     Dosage: 100 MG, QW
     Route: 065
  6. FLOMAX [Suspect]
     Active Substance: TAMSULOSIN HYDROCHLORIDE
     Dosage: 100 MG, QD
     Route: 065
  7. FLOMAX [Suspect]
     Active Substance: TAMSULOSIN HYDROCHLORIDE
     Dosage: RESPIRATORY 1 DF, QD (INHALATION)
     Route: 055
  8. ALENDRONATE SODIUM [Suspect]
     Active Substance: ALENDRONATE SODIUM
     Indication: Product used for unknown indication
     Dosage: 70 MG, QW
     Route: 065
  9. ALENDRONATE SODIUM [Suspect]
     Active Substance: ALENDRONATE SODIUM
     Dosage: 70 MG, QW
  10. ALENDRONATE SODIUM [Suspect]
     Active Substance: ALENDRONATE SODIUM
     Dosage: 70 MG, QD
     Route: 065
  11. ALENDRONATE SODIUM [Suspect]
     Active Substance: ALENDRONATE SODIUM
     Dosage: 100 MG, QD
     Route: 065
  12. ALENDRONATE SODIUM [Suspect]
     Active Substance: ALENDRONATE SODIUM
     Dosage: 1 DF, Q3W
     Route: 065
  13. ALENDRONATE SODIUM [Suspect]
     Active Substance: ALENDRONATE SODIUM
     Dosage: 1 DF, QW
     Route: 065
  14. ALENDRONATE SODIUM [Suspect]
     Active Substance: ALENDRONATE SODIUM
     Dosage: 1 DF, CYCLICAL
  15. ALENDRONATE SODIUM [Suspect]
     Active Substance: ALENDRONATE SODIUM
     Dosage: UNK
  16. ALENDRONATE SODIUM [Suspect]
     Active Substance: ALENDRONATE SODIUM
     Dosage: 1 DF
  17. CALCIUM CARBONATE [Suspect]
     Active Substance: CALCIUM CARBONATE
     Indication: Product used for unknown indication
     Dosage: 1 DF, QD
     Route: 065
  18. CALCIUM CARBONATE [Suspect]
     Active Substance: CALCIUM CARBONATE
     Dosage: 500 MG, QD
  19. CALCIUM CARBONATE [Suspect]
     Active Substance: CALCIUM CARBONATE
     Dosage: 2 DF, QD
  20. CALCIUM CARBONATE [Suspect]
     Active Substance: CALCIUM CARBONATE
     Dosage: UNK, QD
  21. CALCIUM CARBONATE [Suspect]
     Active Substance: CALCIUM CARBONATE
     Dosage: 1 DF, QD
     Route: 065
  22. CALCIUM CARBONATE [Suspect]
     Active Substance: CALCIUM CARBONATE
     Dosage: 500 MG, QD
  23. CALCIUM CARBONATE [Suspect]
     Active Substance: CALCIUM CARBONATE
     Dosage: 1 DF, QD
     Route: 065
  24. CALCIUM CARBONATE [Suspect]
     Active Substance: CALCIUM CARBONATE
     Dosage: 2 DF, QD
  25. CANDESARTAN CILEXETIL [Suspect]
     Active Substance: CANDESARTAN CILEXETIL
     Indication: Product used for unknown indication
     Dosage: 1 DF, QD
     Route: 048
  26. CANDESARTAN CILEXETIL [Suspect]
     Active Substance: CANDESARTAN CILEXETIL
     Dosage: UNK, QD
     Route: 048
  27. CANDESARTAN CILEXETIL [Suspect]
     Active Substance: CANDESARTAN CILEXETIL
     Dosage: 32 MG, QD
     Route: 048
  28. CANDESARTAN CILEXETIL [Suspect]
     Active Substance: CANDESARTAN CILEXETIL
     Dosage: 500 MG
  29. CANDESARTAN CILEXETIL [Suspect]
     Active Substance: CANDESARTAN CILEXETIL
     Dosage: UNK UNK, QD
  30. CANDESARTAN CILEXETIL [Suspect]
     Active Substance: CANDESARTAN CILEXETIL
     Dosage: 1 DF
  31. CANDESARTAN CILEXETIL [Suspect]
     Active Substance: CANDESARTAN CILEXETIL
     Dosage: UNK UNK, QD
  32. CANDESARTAN CILEXETIL [Suspect]
     Active Substance: CANDESARTAN CILEXETIL
     Dosage: 32 MG, QD
  33. CANDESARTAN CILEXETIL [Suspect]
     Active Substance: CANDESARTAN CILEXETIL
     Dosage: 1 DF, QD
  34. CANDESARTAN CILEXETIL [Suspect]
     Active Substance: CANDESARTAN CILEXETIL
     Dosage: 32 MG, QD
  35. CANDESARTAN CILEXETIL [Suspect]
     Active Substance: CANDESARTAN CILEXETIL
     Dosage: UNK UNK, ONCE DAILY
     Route: 065
  36. CANDESARTAN CILEXETIL [Suspect]
     Active Substance: CANDESARTAN CILEXETIL
     Dosage: 32 MG, ONCE DAILY
     Route: 065
  37. CANDESARTAN CILEXETIL [Suspect]
     Active Substance: CANDESARTAN CILEXETIL
     Dosage: 1 DF, UNKNOWN FREQ.
     Route: 065
  38. CANDESARTAN CILEXETIL [Suspect]
     Active Substance: CANDESARTAN CILEXETIL
     Dosage: 32 MG, ONCE DAILY
     Route: 048
  39. CANDESARTAN CILEXETIL [Suspect]
     Active Substance: CANDESARTAN CILEXETIL
     Dosage: 32 MG, ONCE DAILY
     Route: 065
  40. CANDESARTAN CILEXETIL [Suspect]
     Active Substance: CANDESARTAN CILEXETIL
     Dosage: 1 DF, ONCE DAILY
     Route: 048
  41. CANDESARTAN CILEXETIL [Suspect]
     Active Substance: CANDESARTAN CILEXETIL
     Dosage: 1 DF, ONCE DAILY
     Route: 048
  42. CANDESARTAN CILEXETIL [Suspect]
     Active Substance: CANDESARTAN CILEXETIL
     Dosage: UNK UNK, ONCE DAILY
     Route: 048
  43. CANDESARTAN CILEXETIL [Suspect]
     Active Substance: CANDESARTAN CILEXETIL
     Dosage: 500 MG, UNKNOWN FREQ.
     Route: 065
  44. CANDESARTAN CILEXETIL [Suspect]
     Active Substance: CANDESARTAN CILEXETIL
     Dosage: 32 MG, UNKNOWN FREQ.
     Route: 065
  45. CEFUROXIME [Suspect]
     Active Substance: CEFUROXIME
     Indication: Product used for unknown indication
     Dosage: 2 DF, QD
     Route: 065
  46. CEFUROXIME [Suspect]
     Active Substance: CEFUROXIME
     Indication: Product used for unknown indication
     Dosage: 1 DF, Q12H
     Route: 065
  47. CEFUROXIME [Suspect]
     Active Substance: CEFUROXIME
     Dosage: 4 DF, QD
  48. CEFUROXIME [Suspect]
     Active Substance: CEFUROXIME
     Dosage: 1000 MG
  49. CEFUROXIME [Suspect]
     Active Substance: CEFUROXIME
     Dosage: 500 MG, Q12H
     Route: 065
  50. CEFUROXIME [Suspect]
     Active Substance: CEFUROXIME
     Dosage: 1 DF, QD
     Route: 065
  51. CEFUROXIME [Suspect]
     Active Substance: CEFUROXIME
     Dosage: UNK UNK, Q12H
     Route: 065
  52. CEFUROXIME [Suspect]
     Active Substance: CEFUROXIME
     Dosage: 2 DF, Q12H
  53. CEFUROXIME [Suspect]
     Active Substance: CEFUROXIME
     Dosage: 2 DF
  54. CEFUROXIME [Suspect]
     Active Substance: CEFUROXIME
     Dosage: 500 MG
  55. CEFUROXIME [Suspect]
     Active Substance: CEFUROXIME
     Dosage: 100 MG
  56. CEFUROXIME [Suspect]
     Active Substance: CEFUROXIME
     Dosage: 4 DF
  57. CEFUROXIME [Suspect]
     Active Substance: CEFUROXIME
     Dosage: UNK, QD
  58. CEFUROXIME [Suspect]
     Active Substance: CEFUROXIME
     Dosage: 500 MG, OTHER (0.5 DAY)
  59. CEFUROXIME [Suspect]
     Active Substance: CEFUROXIME
     Dosage: 100 MG, UNKNOWN FREQ.
     Route: 065
  60. CEFUROXIME [Suspect]
     Active Substance: CEFUROXIME
     Dosage: 1 DF, ONCE DAILY
     Route: 065
  61. CEFUROXIME [Suspect]
     Active Substance: CEFUROXIME
     Dosage: UNK UNK, EVERY 12 HOURS
     Route: 065
  62. CEFUROXIME [Suspect]
     Active Substance: CEFUROXIME
     Dosage: 4 DF, UNKNOWN FREQ.
     Route: 065
  63. CEFUROXIME [Suspect]
     Active Substance: CEFUROXIME
     Dosage: 2 DF, ONCE DAILY
     Route: 065
  64. CEFUROXIME [Suspect]
     Active Substance: CEFUROXIME
     Dosage: UNK UNK, ONCE DAILY
     Route: 065
  65. CEFUROXIME [Suspect]
     Active Substance: CEFUROXIME
     Dosage: 1 DF, ONCE DAILY
     Route: 065
  66. CEFUROXIME [Suspect]
     Active Substance: CEFUROXIME
     Dosage: 2 DF, UNKNOWN FREQ.
     Route: 065
  67. CEFUROXIME [Suspect]
     Active Substance: CEFUROXIME
     Dosage: 500 MG, UNKNOWN FREQ.
     Route: 065
  68. CEFUROXIME [Suspect]
     Active Substance: CEFUROXIME
     Dosage: 2 DF, ONCE DAILY
     Route: 065
  69. CEFUROXIME [Suspect]
     Active Substance: CEFUROXIME
     Dosage: 4 DF, ONCE DAILY
     Route: 065
  70. CEFUROXIME [Suspect]
     Active Substance: CEFUROXIME
     Dosage: UNK UNK, EVERY 12 HOURS
     Route: 065
  71. CEFUROXIME [Suspect]
     Active Substance: CEFUROXIME
     Dosage: 2 DF, EVERY 12 HOURS
     Route: 065
  72. CEFUROXIME [Suspect]
     Active Substance: CEFUROXIME
     Dosage: 500 MG, EVERY 12 HOURS
     Route: 065
  73. CEFUROXIME [Suspect]
     Active Substance: CEFUROXIME
     Dosage: 2 DF, ONCE DAILY
     Route: 065
  74. CEFUROXIME [Suspect]
     Active Substance: CEFUROXIME
     Dosage: UNK UNK, ONCE DAILY
     Route: 065
  75. CEFUROXIME [Suspect]
     Active Substance: CEFUROXIME
     Dosage: 500 MG, TWICE DAILY (0.5/DAY  )
     Route: 065
  76. CEFUROXIME [Suspect]
     Active Substance: CEFUROXIME
     Dosage: 2 DF, ONCE DAILY
     Route: 065
  77. CEFUROXIME [Suspect]
     Active Substance: CEFUROXIME
     Dosage: 1 DF, UNKNOWN FREQ.
     Route: 065
  78. INSULIN ASPART [Suspect]
     Active Substance: INSULIN ASPART
     Indication: Product used for unknown indication
     Dosage: UNK, QD
     Route: 058
  79. ERGOCALCIFEROL [Suspect]
     Active Substance: ERGOCALCIFEROL
     Indication: Product used for unknown indication
     Dosage: UNK
     Route: 065
  80. PANTOPRAZOLE [Suspect]
     Active Substance: PANTOPRAZOLE
     Indication: Product used for unknown indication
     Dosage: 1 DF, Q12H
     Route: 065
  81. PANTOPRAZOLE [Suspect]
     Active Substance: PANTOPRAZOLE
     Indication: Antineutrophil cytoplasmic antibody positive
     Dosage: 2 DF, QD
  82. PANTOPRAZOLE [Suspect]
     Active Substance: PANTOPRAZOLE
     Indication: Sleep disorder due to a general medical condition
     Dosage: 1 DF, OTHER (0.5 DAY)
  83. PANTOPRAZOLE [Suspect]
     Active Substance: PANTOPRAZOLE
     Indication: Forced expiratory volume decreased
     Dosage: 2 DF, BID
  84. PANTOPRAZOLE [Suspect]
     Active Substance: PANTOPRAZOLE
     Indication: Wheezing
     Dosage: UNK
  85. PANTOPRAZOLE [Suspect]
     Active Substance: PANTOPRAZOLE
     Indication: Neurological symptom
     Dosage: 1 DF, BID
  86. PANTOPRAZOLE [Suspect]
     Active Substance: PANTOPRAZOLE
     Indication: Productive cough
     Dosage: 1 DF
  87. PANTOPRAZOLE [Suspect]
     Active Substance: PANTOPRAZOLE
     Indication: Full blood count abnormal
     Dosage: 4 DF, QD
  88. PANTOPRAZOLE [Suspect]
     Active Substance: PANTOPRAZOLE
     Indication: Respiratory symptom
     Dosage: 4 DF, BID
  89. PANTOPRAZOLE [Suspect]
     Active Substance: PANTOPRAZOLE
     Indication: Anxiety
     Dosage: 2 DF, QD
  90. PANTOPRAZOLE [Suspect]
     Active Substance: PANTOPRAZOLE
     Indication: Haemoptysis
  91. PANTOPRAZOLE [Suspect]
     Active Substance: PANTOPRAZOLE
     Indication: Thrombosis
  92. PANTOPRAZOLE [Suspect]
     Active Substance: PANTOPRAZOLE
     Indication: Dust allergy
  93. PANTOPRAZOLE [Suspect]
     Active Substance: PANTOPRAZOLE
     Indication: Eosinophilic granulomatosis with polyangiitis
  94. PANTOPRAZOLE [Suspect]
     Active Substance: PANTOPRAZOLE
     Indication: Conjunctivitis allergic
  95. PANTOPRAZOLE [Suspect]
     Active Substance: PANTOPRAZOLE
     Indication: Neuritis
  96. PANTOPRAZOLE [Suspect]
     Active Substance: PANTOPRAZOLE
     Indication: Pulmonary fibrosis
  97. PANTOPRAZOLE [Suspect]
     Active Substance: PANTOPRAZOLE
     Indication: Pulmonary vasculitis
  98. PANTOPRAZOLE [Suspect]
     Active Substance: PANTOPRAZOLE
     Indication: Mycotic allergy
  99. PANTOPRAZOLE [Suspect]
     Active Substance: PANTOPRAZOLE
     Indication: Capillaritis
  100. PANTOPRAZOLE [Suspect]
     Active Substance: PANTOPRAZOLE
     Indication: Normochromic normocytic anaemia
  101. PANTOPRAZOLE [Suspect]
     Active Substance: PANTOPRAZOLE
     Indication: Mite allergy
  102. PANTOPRAZOLE [Suspect]
     Active Substance: PANTOPRAZOLE
     Indication: Arteriosclerosis coronary artery
  103. PANTOPRAZOLE [Suspect]
     Active Substance: PANTOPRAZOLE
     Indication: Obstructive airways disorder
  104. PANTOPRAZOLE [Suspect]
     Active Substance: PANTOPRAZOLE
     Indication: Nodule
  105. PANTOPRAZOLE [Suspect]
     Active Substance: PANTOPRAZOLE
     Indication: Total lung capacity
  106. PANTOPRAZOLE [Suspect]
     Active Substance: PANTOPRAZOLE
     Indication: Pulmonary alveolar haemorrhage
  107. PREDNISONE [Suspect]
     Active Substance: PREDNISONE
     Indication: Asthma
     Dosage: 80 MG, QD
     Route: 065
  108. PREDNISONE [Suspect]
     Active Substance: PREDNISONE
     Dosage: 5 MG, QD
     Route: 065
  109. PREDNISONE [Suspect]
     Active Substance: PREDNISONE
     Dosage: 1 DF, QD
     Route: 065
  110. PREDNISONE [Suspect]
     Active Substance: PREDNISONE
     Dosage: 80 MG
  111. PREDNISONE [Suspect]
     Active Substance: PREDNISONE
     Dosage: 50 MG, QD
  112. PREDNISONE [Suspect]
     Active Substance: PREDNISONE
     Dosage: 80 MG, ONCE DAILY (1 EVERY 1 DAYS )
     Route: 065
  113. PREDNISONE [Suspect]
     Active Substance: PREDNISONE
     Dosage: 5 MG, UNKNOWN FREQ.
     Route: 065
  114. PREDNISONE [Suspect]
     Active Substance: PREDNISONE
     Dosage: 80 MG, ONCE DAILY
     Route: 065
  115. PREDNISONE [Suspect]
     Active Substance: PREDNISONE
     Dosage: 5 MG, ONCE DAILY
     Route: 065
  116. PREDNISONE [Suspect]
     Active Substance: PREDNISONE
     Dosage: 1 DF, ONCE DAILY
     Route: 065
  117. ALBUTEROL SULFATE [Suspect]
     Active Substance: ALBUTEROL SULFATE
     Indication: Eosinophilic granulomatosis with polyangiitis
     Dosage: 1 DF, QD
     Route: 065
  118. LEVOTHYROXINE SODIUM [Suspect]
     Active Substance: LEVOTHYROXINE SODIUM
     Indication: Product used for unknown indication
     Dosage: UNK
     Route: 065
  119. METFORMIN HYDROCHLORIDE [Suspect]
     Active Substance: METFORMIN HYDROCHLORIDE
     Indication: Product used for unknown indication
     Dosage: UNK UNK, QID
  120. METFORMIN HYDROCHLORIDE [Suspect]
     Active Substance: METFORMIN HYDROCHLORIDE
     Dosage: 500 MG, Q12H
  121. METFORMIN HYDROCHLORIDE [Suspect]
     Active Substance: METFORMIN HYDROCHLORIDE
     Dosage: 2 DF, Q12H
     Route: 065
  122. METFORMIN HYDROCHLORIDE [Suspect]
     Active Substance: METFORMIN HYDROCHLORIDE
     Dosage: 2 DF, QD
     Route: 065
  123. METFORMIN HYDROCHLORIDE [Suspect]
     Active Substance: METFORMIN HYDROCHLORIDE
     Dosage: UNK UNK, EVERY 6 HOURS
     Route: 065
  124. METFORMIN HYDROCHLORIDE [Suspect]
     Active Substance: METFORMIN HYDROCHLORIDE
     Dosage: 4 DF, QD
     Route: 065
  125. METFORMIN HYDROCHLORIDE [Suspect]
     Active Substance: METFORMIN HYDROCHLORIDE
     Dosage: 4 DF, QD
     Route: 065
  126. METFORMIN HYDROCHLORIDE [Suspect]
     Active Substance: METFORMIN HYDROCHLORIDE
     Dosage: 500 MG, BID
     Route: 065
  127. METFORMIN HYDROCHLORIDE [Suspect]
     Active Substance: METFORMIN HYDROCHLORIDE
     Dosage: 1 DF, QD
  128. METFORMIN HYDROCHLORIDE [Suspect]
     Active Substance: METFORMIN HYDROCHLORIDE
     Dosage: UNK, QD
  129. METFORMIN HYDROCHLORIDE [Suspect]
     Active Substance: METFORMIN HYDROCHLORIDE
     Dosage: 4 DF, ONCE DAILY
     Route: 065
  130. METFORMIN HYDROCHLORIDE [Suspect]
     Active Substance: METFORMIN HYDROCHLORIDE
     Dosage: 2 DF, ONCE DAILY
     Route: 065
  131. METFORMIN HYDROCHLORIDE [Suspect]
     Active Substance: METFORMIN HYDROCHLORIDE
     Dosage: 500 MG, EVERY 12 HOURS
     Route: 065
  132. METFORMIN HYDROCHLORIDE [Suspect]
     Active Substance: METFORMIN HYDROCHLORIDE
     Dosage: UNK UNK, ONCE DAILY
     Route: 065
  133. METFORMIN HYDROCHLORIDE [Suspect]
     Active Substance: METFORMIN HYDROCHLORIDE
     Dosage: 1 DF, ONCE DAILY
     Route: 065
  134. LASIX [Suspect]
     Active Substance: FUROSEMIDE
     Indication: Product used for unknown indication
     Dosage: 1 DF, QD
     Route: 065
  135. LASIX [Suspect]
     Active Substance: FUROSEMIDE
     Indication: Spirometry abnormal
     Dosage: 40 MG, QD
  136. LASIX [Suspect]
     Active Substance: FUROSEMIDE
     Indication: Pulmonary vasculitis
     Dosage: 2 DF, QD
  137. LASIX [Suspect]
     Active Substance: FUROSEMIDE
     Indication: Eosinophilic granulomatosis with polyangiitis
     Dosage: UNK UNK, QD
     Route: 065
  138. LASIX [Suspect]
     Active Substance: FUROSEMIDE
     Indication: Sleep disorder due to a general medical condition
     Dosage: 2 DF
  139. LASIX [Suspect]
     Active Substance: FUROSEMIDE
     Indication: Haemoptysis
     Dosage: 1 DF, QD
  140. LASIX [Suspect]
     Active Substance: FUROSEMIDE
     Indication: Dust allergy
     Dosage: 1 DF, QD
  141. LASIX [Suspect]
     Active Substance: FUROSEMIDE
     Indication: Mycotic allergy
     Dosage: 1 MG, QD
  142. LASIX [Suspect]
     Active Substance: FUROSEMIDE
     Indication: Capillaritis
     Dosage: CYCLICAL
  143. LASIX [Suspect]
     Active Substance: FUROSEMIDE
     Indication: Mite allergy
     Dosage: 1 MG, QD
  144. LASIX [Suspect]
     Active Substance: FUROSEMIDE
     Indication: Productive cough
     Dosage: 2 DF, UNKNOWN FREQ.
     Route: 065
  145. LASIX [Suspect]
     Active Substance: FUROSEMIDE
     Indication: Hypoxia
     Dosage: UNK UNK, UNKNOWN FREQ.
     Route: 065
  146. LASIX [Suspect]
     Active Substance: FUROSEMIDE
     Indication: Lung disorder
     Dosage: 1 DF, ONCE DAILY
     Route: 065
  147. LASIX [Suspect]
     Active Substance: FUROSEMIDE
     Indication: Vasculitis
     Dosage: 1 MG, ONCE DAILY
     Route: 065
  148. LASIX [Suspect]
     Active Substance: FUROSEMIDE
     Indication: Anxiety
     Dosage: UNK UNK, UNKNOWN FREQ.
     Route: 065
  149. LASIX [Suspect]
     Active Substance: FUROSEMIDE
     Indication: Obstructive airways disorder
     Dosage: 40 MG, ONCE DAILY
     Route: 065
  150. LASIX [Suspect]
     Active Substance: FUROSEMIDE
     Indication: Thrombosis
     Dosage: 2 DF, ONCE DAILY
     Route: 065
  151. LASIX [Suspect]
     Active Substance: FUROSEMIDE
     Indication: Hypothyroidism
     Dosage: UNK, ONCE DAILY
     Route: 065
  152. LASIX [Suspect]
     Active Substance: FUROSEMIDE
     Indication: Pain in extremity
  153. LASIX [Suspect]
     Active Substance: FUROSEMIDE
     Indication: Conjunctivitis allergic
  154. LASIX [Suspect]
     Active Substance: FUROSEMIDE
     Indication: Neuritis
  155. LASIX [Suspect]
     Active Substance: FUROSEMIDE
     Indication: Nodule
  156. LASIX [Suspect]
     Active Substance: FUROSEMIDE
     Indication: Pulmonary embolism
  157. LASIX [Suspect]
     Active Substance: FUROSEMIDE
     Indication: Loss of personal independence in daily activities
  158. LASIX [Suspect]
     Active Substance: FUROSEMIDE
     Indication: Normochromic normocytic anaemia
  159. LASIX [Suspect]
     Active Substance: FUROSEMIDE
     Indication: Neurological symptom
  160. LASIX [Suspect]
     Active Substance: FUROSEMIDE
     Indication: Forced expiratory volume decreased
  161. SULFAMETHOXAZOLE\TRIMETHOPRIM [Suspect]
     Active Substance: SULFAMETHOXAZOLE\TRIMETHOPRIM
     Indication: Prophylaxis
     Dosage: 86 MG, TIW
     Route: 065
  162. BETAMETHASONE DIPROPIONATE [Suspect]
     Active Substance: BETAMETHASONE DIPROPIONATE
     Indication: Product used for unknown indication
     Dosage: UNK
     Route: 065
  163. BETAMETHASONE DIPROPIONATE [Suspect]
     Active Substance: BETAMETHASONE DIPROPIONATE
     Dosage: UNK UNK, UNKNOWN FREQ.
     Route: 065
  164. BETAMETHASONE DIPROPIONATE [Suspect]
     Active Substance: BETAMETHASONE DIPROPIONATE
     Dosage: UNK UNK, UNKNOWN FREQ.
     Route: 065
  165. TAMSULOSIN HYDROCHLORIDE [Suspect]
     Active Substance: TAMSULOSIN HYDROCHLORIDE
     Indication: Product used for unknown indication
     Dosage: 1 DF, QD
     Route: 065
  166. TAMSULOSIN HYDROCHLORIDE [Suspect]
     Active Substance: TAMSULOSIN HYDROCHLORIDE
     Indication: Product used for unknown indication
     Dosage: 100 MG, QD
     Route: 065
  167. TAMSULOSIN HYDROCHLORIDE [Suspect]
     Active Substance: TAMSULOSIN HYDROCHLORIDE
     Dosage: 1 DF, ONCE DAILY (INHALATION) ROUTE OF ADMIN (FREE TEXT): RESPIRATORY (INHALATION)
  168. TAMSULOSIN HYDROCHLORIDE [Suspect]
     Active Substance: TAMSULOSIN HYDROCHLORIDE
     Dosage: 1 DF, ONCE DAILY
     Route: 065
  169. TAMSULOSIN HYDROCHLORIDE [Suspect]
     Active Substance: TAMSULOSIN HYDROCHLORIDE
     Dosage: 100 MG, ONCE DAILY
     Route: 065
  170. TAMSULOSIN HYDROCHLORIDE [Suspect]
     Active Substance: TAMSULOSIN HYDROCHLORIDE
     Dosage: 100 MG, ONCE WEEKLY
     Route: 065
  171. SULFAMETHOXAZOLE\TRIMETHOPRIM [Suspect]
     Active Substance: SULFAMETHOXAZOLE\TRIMETHOPRIM
     Indication: Product used for unknown indication
     Dosage: 86 MG
     Route: 065
  172. SULFAMETHOXAZOLE\TRIMETHOPRIM [Suspect]
     Active Substance: SULFAMETHOXAZOLE\TRIMETHOPRIM
     Dosage: UNK UNK, UNKNOWN FREQ.
     Route: 065
  173. SULFAMETHOXAZOLE\TRIMETHOPRIM [Suspect]
     Active Substance: SULFAMETHOXAZOLE\TRIMETHOPRIM
     Dosage: UNK UNK, UNKNOWN FREQ.
     Route: 065
  174. SULFAMETHOXAZOLE\TRIMETHOPRIM [Suspect]
     Active Substance: SULFAMETHOXAZOLE\TRIMETHOPRIM
     Dosage: UNK UNK, UNKNOWN FREQ.
     Route: 065
  175. SULFAMETHOXAZOLE\TRIMETHOPRIM [Suspect]
     Active Substance: SULFAMETHOXAZOLE\TRIMETHOPRIM
     Dosage: 86 MG, UNKNOWN FREQ.
     Route: 065
  176. CEFUROXIME AXETIL [Suspect]
     Active Substance: CEFUROXIME AXETIL
     Indication: Product used for unknown indication
     Dosage: 500 MG, Q12H
     Route: 065
  177. CEFUROXIME AXETIL [Suspect]
     Active Substance: CEFUROXIME AXETIL
     Indication: Product used for unknown indication
     Dosage: 4 DF, QD
  178. CEFUROXIME AXETIL [Suspect]
     Active Substance: CEFUROXIME AXETIL
     Dosage: 500 MG, QD
  179. CEFUROXIME AXETIL [Suspect]
     Active Substance: CEFUROXIME AXETIL
     Dosage: 1 DF, QD
  180. CEFUROXIME AXETIL [Suspect]
     Active Substance: CEFUROXIME AXETIL
     Dosage: 2 DF, QD
  181. CEFUROXIME AXETIL [Suspect]
     Active Substance: CEFUROXIME AXETIL
     Dosage: 500 MG, BID
     Route: 065
  182. CEFUROXIME AXETIL [Suspect]
     Active Substance: CEFUROXIME AXETIL
     Dosage: UNK UNK, BID
     Route: 065
  183. CEFUROXIME AXETIL [Suspect]
     Active Substance: CEFUROXIME AXETIL
     Dosage: 500 MG, EVERY 12 HOURS
     Route: 065
  184. CEFUROXIME AXETIL [Suspect]
     Active Substance: CEFUROXIME AXETIL
     Dosage: 500 MG, EVERY 12 HOURS
     Route: 065
  185. CEFUROXIME AXETIL [Suspect]
     Active Substance: CEFUROXIME AXETIL
     Dosage: 500 MG, ONCE DAILY
     Route: 065
  186. CEFUROXIME AXETIL [Suspect]
     Active Substance: CEFUROXIME AXETIL
     Dosage: 2 DF, ONCE DAILY
     Route: 065
  187. CEFUROXIME AXETIL [Suspect]
     Active Substance: CEFUROXIME AXETIL
     Dosage: 1 DF, ONCE DAILY
     Route: 065
  188. CANDESARTAN [Suspect]
     Active Substance: CANDESARTAN
     Indication: Product used for unknown indication
     Dosage: 1 DF, QD
     Route: 048
  189. CANDESARTAN [Suspect]
     Active Substance: CANDESARTAN
     Dosage: UNK, QD
  190. CANDESARTAN [Suspect]
     Active Substance: CANDESARTAN
     Dosage: 32 MG, QD
     Route: 048
  191. CANDESARTAN [Suspect]
     Active Substance: CANDESARTAN
     Dosage: 500 MG
  192. CANDESARTAN [Suspect]
     Active Substance: CANDESARTAN
     Dosage: 1 DF, QD
     Route: 065
  193. BETAMETHASONE [Suspect]
     Active Substance: BETAMETHASONE
     Indication: Product used for unknown indication
     Dosage: UNK
     Route: 065
  194. MAGNESIUM OXIDE [Suspect]
     Active Substance: MAGNESIUM OXIDE
     Indication: Product used for unknown indication
     Dosage: 1 DF, Q12H
     Route: 065
  195. MAGNESIUM OXIDE [Suspect]
     Active Substance: MAGNESIUM OXIDE
     Indication: Product used for unknown indication
     Dosage: 840 MG
  196. MAGNESIUM OXIDE [Suspect]
     Active Substance: MAGNESIUM OXIDE
     Dosage: 2 DF, QD
  197. MAGNESIUM OXIDE [Suspect]
     Active Substance: MAGNESIUM OXIDE
     Dosage: 2 DF, QD
     Route: 065
  198. MAGNESIUM OXIDE [Suspect]
     Active Substance: MAGNESIUM OXIDE
     Dosage: 420 MG, BID
  199. MAGNESIUM OXIDE [Suspect]
     Active Substance: MAGNESIUM OXIDE
     Dosage: UNK, QD
  200. MAGNESIUM OXIDE [Suspect]
     Active Substance: MAGNESIUM OXIDE
     Dosage: 1 DF, QD
  201. MAGNESIUM OXIDE [Suspect]
     Active Substance: MAGNESIUM OXIDE
     Dosage: UNK UNK, ONCE DAILY
     Route: 065
  202. MAGNESIUM OXIDE [Suspect]
     Active Substance: MAGNESIUM OXIDE
     Dosage: UNK UNK, ONCE DAILY
     Route: 065
  203. MAGNESIUM OXIDE [Suspect]
     Active Substance: MAGNESIUM OXIDE
     Dosage: 1 DF, EVERY 12 HOURS
     Route: 065
  204. MAGNESIUM OXIDE [Suspect]
     Active Substance: MAGNESIUM OXIDE
     Dosage: 1 DF, EVERY 12 HOURS
     Route: 065
  205. MAGNESIUM OXIDE [Suspect]
     Active Substance: MAGNESIUM OXIDE
     Dosage: 1 DF, ONCE DAILY
     Route: 065
  206. MAGNESIUM OXIDE [Suspect]
     Active Substance: MAGNESIUM OXIDE
     Dosage: 2 DF, ONCE DAILY
     Route: 065
  207. MAGNESIUM OXIDE [Suspect]
     Active Substance: MAGNESIUM OXIDE
     Dosage: 2 DF, ONCE DAILY
     Route: 065
  208. CEPHALEXIN [Suspect]
     Active Substance: CEPHALEXIN
     Indication: Product used for unknown indication
     Dosage: 1 DF
  209. CEPHALEXIN [Suspect]
     Active Substance: CEPHALEXIN
     Dosage: 1 DF, UNKNOWN FREQ.
     Route: 065
  210. CEPHALEXIN [Suspect]
     Active Substance: CEPHALEXIN
     Dosage: 1 DF, ONCE DAILY
     Route: 065
  211. PANTOPRAZOLE SODIUM [Suspect]
     Active Substance: PANTOPRAZOLE SODIUM
     Indication: Vasculitis
     Dosage: 2 DF, QD
  212. PANTOPRAZOLE SODIUM [Suspect]
     Active Substance: PANTOPRAZOLE SODIUM
     Indication: Hypothyroidism
     Dosage: 40 MG, QD
  213. PANTOPRAZOLE SODIUM [Suspect]
     Active Substance: PANTOPRAZOLE SODIUM
     Indication: Product used for unknown indication
     Dosage: 40 MG, BID
  214. PANTOPRAZOLE SODIUM [Suspect]
     Active Substance: PANTOPRAZOLE SODIUM
     Dosage: 2 DF, BID
  215. PANTOPRAZOLE SODIUM [Suspect]
     Active Substance: PANTOPRAZOLE SODIUM
     Dosage: UNK, BID
  216. PANTOPRAZOLE SODIUM [Suspect]
     Active Substance: PANTOPRAZOLE SODIUM
     Dosage: 2 DF, QD
  217. PANTOPRAZOLE SODIUM [Suspect]
     Active Substance: PANTOPRAZOLE SODIUM
     Dosage: 2 DF, ONCE DAILY
     Route: 065
  218. PANTOPRAZOLE SODIUM [Suspect]
     Active Substance: PANTOPRAZOLE SODIUM
     Dosage: 2 DF, ONCE DAILY (1 EVERY 1 DAYS)
     Route: 065
  219. PANTOPRAZOLE SODIUM [Suspect]
     Active Substance: PANTOPRAZOLE SODIUM
     Dosage: 1 DF, UNKNOWN FREQ.
     Route: 065
  220. PANTOPRAZOLE SODIUM [Suspect]
     Active Substance: PANTOPRAZOLE SODIUM
     Dosage: 40 MG, EVERY 12 HOURS
     Route: 065
  221. PANTOPRAZOLE SODIUM [Suspect]
     Active Substance: PANTOPRAZOLE SODIUM
     Dosage: 40 MG, ONCE DAILY
     Route: 065
  222. PANTOPRAZOLE SODIUM [Suspect]
     Active Substance: PANTOPRAZOLE SODIUM
     Dosage: UNK UNK, EVERY 12 HOURS
     Route: 065
  223. PANTOPRAZOLE SODIUM [Suspect]
     Active Substance: PANTOPRAZOLE SODIUM
     Dosage: 2 DF, EVERY 12 HOURS
     Route: 065
  224. CLOTRIMAZOLE [Suspect]
     Active Substance: CLOTRIMAZOLE
     Indication: Product used for unknown indication
     Dosage: 1 DF
  225. CLOTRIMAZOLE [Suspect]
     Active Substance: CLOTRIMAZOLE
     Indication: Product used for unknown indication
     Dosage: 1 DF, UNKNOWN FREQ.
     Route: 065
  226. VITAMIN B [Suspect]
     Active Substance: VITAMIN B
     Dosage: UNK
  227. PENICILLIN G SODIUM [Suspect]
     Active Substance: PENICILLIN G SODIUM
     Dosage: UNK
  228. CANDESARTAN CILEXETIL\HYDROCHLOROTHIAZIDE [Suspect]
     Active Substance: CANDESARTAN CILEXETIL\HYDROCHLOROTHIAZIDE
     Indication: Product used for unknown indication
     Dosage: 1 DF, QD
     Route: 048
  229. CANDESARTAN CILEXETIL\HYDROCHLOROTHIAZIDE [Suspect]
     Active Substance: CANDESARTAN CILEXETIL\HYDROCHLOROTHIAZIDE
     Dosage: 1 DF, QD
     Route: 048
  230. CANDESARTAN CILEXETIL\HYDROCHLOROTHIAZIDE [Suspect]
     Active Substance: CANDESARTAN CILEXETIL\HYDROCHLOROTHIAZIDE
     Dosage: 32 MG, QD
     Route: 048
  231. CANDESARTAN CILEXETIL\HYDROCHLOROTHIAZIDE [Suspect]
     Active Substance: CANDESARTAN CILEXETIL\HYDROCHLOROTHIAZIDE
     Dosage: UNK UNK, ONCE DAILY
     Route: 065
  232. CANDESARTAN CILEXETIL\HYDROCHLOROTHIAZIDE [Suspect]
     Active Substance: CANDESARTAN CILEXETIL\HYDROCHLOROTHIAZIDE
     Dosage: UNK, UNKNOWN FREQ.
     Route: 065
  233. CANDESARTAN CILEXETIL\HYDROCHLOROTHIAZIDE [Suspect]
     Active Substance: CANDESARTAN CILEXETIL\HYDROCHLOROTHIAZIDE
     Dosage: 32 MG, ONCE DAILY
     Route: 048
  234. CEFUROXIME SODIUM [Suspect]
     Active Substance: CEFUROXIME SODIUM
     Indication: Product used for unknown indication
     Dosage: 500 MG
  235. CEFUROXIME SODIUM [Suspect]
     Active Substance: CEFUROXIME SODIUM
     Dosage: 1 DF, QD
  236. CEFUROXIME SODIUM [Suspect]
     Active Substance: CEFUROXIME SODIUM
     Dosage: 500 MG, BID
  237. CEFUROXIME SODIUM [Suspect]
     Active Substance: CEFUROXIME SODIUM
     Dosage: 2 DF, Q12H
  238. CEFUROXIME SODIUM [Suspect]
     Active Substance: CEFUROXIME SODIUM
     Dosage: 1 DF
  239. CEFUROXIME SODIUM [Suspect]
     Active Substance: CEFUROXIME SODIUM
     Dosage: 2 DF, Q12H
  240. CEFUROXIME SODIUM [Suspect]
     Active Substance: CEFUROXIME SODIUM
     Dosage: 500 MG, EVERY 12 HOURS
     Route: 065
  241. CEFUROXIME SODIUM [Suspect]
     Active Substance: CEFUROXIME SODIUM
     Dosage: 1 DF, ONCE DAILY
     Route: 065
  242. CEFUROXIME SODIUM [Suspect]
     Active Substance: CEFUROXIME SODIUM
     Dosage: 2 DF, EVERY 12 HOURS
     Route: 065
  243. CEFUROXIME SODIUM [Suspect]
     Active Substance: CEFUROXIME SODIUM
     Dosage: 500 MG, UNKNOWN FREQ.
     Route: 065
  244. CEFUROXIME SODIUM [Suspect]
     Active Substance: CEFUROXIME SODIUM
     Dosage: 1 DF, UNKNOWN FREQ.
     Route: 065
  245. CEFUROXIME SODIUM [Suspect]
     Active Substance: CEFUROXIME SODIUM
     Dosage: 2 DF, EVERY 12 HOURS
     Route: 065
  246. CEFUROXIME SODIUM [Suspect]
     Active Substance: CEFUROXIME SODIUM
     Dosage: 4 DF, ONCE DAILY
     Route: 065
  247. CEFUROXIME SODIUM [Suspect]
     Active Substance: CEFUROXIME SODIUM
     Dosage: 4 DF, ONCE DAILY
     Route: 065
  248. SERTRALINE HYDROCHLORIDE [Suspect]
     Active Substance: SERTRALINE HYDROCHLORIDE
     Indication: Product used for unknown indication
     Dosage: UNK
  249. SERTRALINE HYDROCHLORIDE [Suspect]
     Active Substance: SERTRALINE HYDROCHLORIDE
     Dosage: UNK UNK, UNKNOWN FREQ.
     Route: 065
  250. LEVOFLOXACIN [Suspect]
     Active Substance: LEVOFLOXACIN
     Indication: Product used for unknown indication
     Dosage: 3 DF, QD
     Route: 065
  251. LEVOFLOXACIN [Suspect]
     Active Substance: LEVOFLOXACIN
     Dosage: 750 MG, QD
  252. LEVOFLOXACIN [Suspect]
     Active Substance: LEVOFLOXACIN
     Dosage: UNK UNK, TID
     Route: 065
  253. LEVOFLOXACIN [Suspect]
     Active Substance: LEVOFLOXACIN
     Dosage: UNK UNK, QD
     Route: 065
  254. LEVOFLOXACIN [Suspect]
     Active Substance: LEVOFLOXACIN
     Dosage: 1 DF, QD
     Route: 065
  255. LEVOFLOXACIN [Suspect]
     Active Substance: LEVOFLOXACIN
     Dosage: 500 MG
  256. LEVOFLOXACIN [Suspect]
     Active Substance: LEVOFLOXACIN
     Dosage: 750 MG
  257. LEVOFLOXACIN [Suspect]
     Active Substance: LEVOFLOXACIN
     Dosage: 750 MG, QD
  258. LEVOFLOXACIN [Suspect]
     Active Substance: LEVOFLOXACIN
     Dosage: 3 DF, QD
     Route: 065
  259. LEVOFLOXACIN [Suspect]
     Active Substance: LEVOFLOXACIN
     Dosage: 500 MG
  260. LEVOFLOXACIN [Suspect]
     Active Substance: LEVOFLOXACIN
     Dosage: 1 DF, BID
  261. LEVOFLOXACIN [Suspect]
     Active Substance: LEVOFLOXACIN
     Dosage: 1 DF, QD
  262. LEVOFLOXACIN [Suspect]
     Active Substance: LEVOFLOXACIN
     Dosage: UNK, TID
  263. LEVOFLOXACIN [Suspect]
     Active Substance: LEVOFLOXACIN
     Dosage: UNK, TID
  264. LEVOFLOXACIN [Suspect]
     Active Substance: LEVOFLOXACIN
     Dosage: 1 DF, QD
  265. LEVOFLOXACIN [Suspect]
     Active Substance: LEVOFLOXACIN
     Dosage: 1 DF, BID
  266. BUDESONIDE\FORMOTEROL FUMARATE [Suspect]
     Active Substance: BUDESONIDE\FORMOTEROL FUMARATE
     Indication: Product used for unknown indication
     Dosage: UNK
     Route: 065
  267. BUDESONIDE\FORMOTEROL FUMARATE [Suspect]
     Active Substance: BUDESONIDE\FORMOTEROL FUMARATE
     Indication: Product used for unknown indication
  268. DOMPERIDONE MALEATE [Suspect]
     Active Substance: DOMPERIDONE MALEATE
     Indication: Product used for unknown indication
     Dosage: 1 DF, QD
     Route: 065
  269. DOMPERIDONE MALEATE [Suspect]
     Active Substance: DOMPERIDONE MALEATE
     Dosage: 1 DF, BID
     Route: 065
  270. DOMPERIDONE MALEATE [Suspect]
     Active Substance: DOMPERIDONE MALEATE
     Dosage: 2 DF, QD
  271. DOMPERIDONE MALEATE [Suspect]
     Active Substance: DOMPERIDONE MALEATE
     Dosage: 10 MG, Q12H
  272. DOMPERIDONE MALEATE [Suspect]
     Active Substance: DOMPERIDONE MALEATE
     Dosage: 1 DF, QD
     Route: 065
  273. DOMPERIDONE MALEATE [Suspect]
     Active Substance: DOMPERIDONE MALEATE
     Dosage: 20 MG, QD
  274. DOMPERIDONE MALEATE [Suspect]
     Active Substance: DOMPERIDONE MALEATE
     Dosage: 10 MG, QD
  275. DOMPERIDONE MALEATE [Suspect]
     Active Substance: DOMPERIDONE MALEATE
     Dosage: UNK, QD
  276. DOMPERIDONE MALEATE [Suspect]
     Active Substance: DOMPERIDONE MALEATE
     Dosage: 2 DF, Q12H
  277. DOMPERIDONE MALEATE [Suspect]
     Active Substance: DOMPERIDONE MALEATE
     Dosage: 2 DF, ONCE DAILY
     Route: 065
  278. DOMPERIDONE MALEATE [Suspect]
     Active Substance: DOMPERIDONE MALEATE
     Dosage: UNK UNK, EVERY 12 HOURS
     Route: 065
  279. DOMPERIDONE MALEATE [Suspect]
     Active Substance: DOMPERIDONE MALEATE
     Dosage: 1 DF, ONCE DAILY
     Route: 065
  280. DOMPERIDONE MALEATE [Suspect]
     Active Substance: DOMPERIDONE MALEATE
     Dosage: 2 DF, EVERY 12 HOURS
     Route: 065
  281. DOMPERIDONE MALEATE [Suspect]
     Active Substance: DOMPERIDONE MALEATE
     Dosage: 1 DF, EVERY 12 HOURS
     Route: 065
  282. DOMPERIDONE MALEATE [Suspect]
     Active Substance: DOMPERIDONE MALEATE
     Dosage: UNK UNK, ONCE DAILY
     Route: 065
  283. DOMPERIDONE MALEATE [Suspect]
     Active Substance: DOMPERIDONE MALEATE
     Dosage: UNK UNK, EVERY 12 HOURS
     Route: 065
  284. DOMPERIDONE MALEATE [Suspect]
     Active Substance: DOMPERIDONE MALEATE
     Dosage: 10 MG, EVERY 12 HOURS
     Route: 065
  285. DOMPERIDONE MALEATE [Suspect]
     Active Substance: DOMPERIDONE MALEATE
     Dosage: 2 DF, ONCE DAILY
     Route: 065
  286. DOMPERIDONE MALEATE [Suspect]
     Active Substance: DOMPERIDONE MALEATE
     Dosage: 10 MG, ONCE DAILY
     Route: 065
  287. DOMPERIDONE MALEATE [Suspect]
     Active Substance: DOMPERIDONE MALEATE
     Dosage: 1 DF, ONCE DAILY
     Route: 065
  288. DOMPERIDONE MALEATE [Suspect]
     Active Substance: DOMPERIDONE MALEATE
     Dosage: 10 MG, EVERY 12 HOURS
     Route: 065
  289. AZITHROMYCIN [Suspect]
     Active Substance: AZITHROMYCIN
     Indication: Product used for unknown indication
     Dosage: 2 DF, QD
     Route: 065
  290. AZITHROMYCIN [Suspect]
     Active Substance: AZITHROMYCIN
     Indication: Lung disorder
     Dosage: 250 MG, QD
     Route: 065
  291. AZITHROMYCIN [Suspect]
     Active Substance: AZITHROMYCIN
     Indication: Pulmonary fibrosis
     Dosage: UNK UNK, QD
     Route: 065
  292. AZITHROMYCIN [Suspect]
     Active Substance: AZITHROMYCIN
     Indication: Arteriosclerosis coronary artery
     Dosage: 250 MG (1 DF), EVERY 12 HOURS
     Route: 065
  293. AZITHROMYCIN [Suspect]
     Active Substance: AZITHROMYCIN
     Indication: Productive cough
     Dosage: 1 DF, QD
     Route: 065
  294. AZITHROMYCIN [Suspect]
     Active Substance: AZITHROMYCIN
     Indication: Pulmonary vasculitis
     Dosage: 1 DF, QD
     Route: 065
  295. AZITHROMYCIN [Suspect]
     Active Substance: AZITHROMYCIN
     Indication: Dyspnoea
     Dosage: 2 DF
  296. AZITHROMYCIN [Suspect]
     Active Substance: AZITHROMYCIN
     Indication: Mite allergy
     Dosage: 2 DF
  297. AZITHROMYCIN [Suspect]
     Active Substance: AZITHROMYCIN
     Indication: Wheezing
     Dosage: 250 MG, QD
  298. AZITHROMYCIN [Suspect]
     Active Substance: AZITHROMYCIN
     Indication: Obstructive airways disorder
     Dosage: 250 MG, QD
  299. AZITHROMYCIN [Suspect]
     Active Substance: AZITHROMYCIN
     Indication: Antineutrophil cytoplasmic antibody positive
     Dosage: 1 DF, ONCE DAILY
     Route: 065
  300. AZITHROMYCIN [Suspect]
     Active Substance: AZITHROMYCIN
     Indication: Forced expiratory volume decreased
  301. AZITHROMYCIN [Suspect]
     Active Substance: AZITHROMYCIN
     Indication: Thrombosis
  302. AZITHROMYCIN [Suspect]
     Active Substance: AZITHROMYCIN
     Indication: Nodule
  303. AZITHROMYCIN [Suspect]
     Active Substance: AZITHROMYCIN
     Indication: Normochromic normocytic anaemia
  304. AZITHROMYCIN [Suspect]
     Active Substance: AZITHROMYCIN
     Indication: Neurological symptom
  305. AZITHROMYCIN [Suspect]
     Active Substance: AZITHROMYCIN
     Indication: Hypothyroidism
  306. AZITHROMYCIN [Suspect]
     Active Substance: AZITHROMYCIN
     Indication: Eosinophilic granulomatosis with polyangiitis
  307. AZITHROMYCIN [Suspect]
     Active Substance: AZITHROMYCIN
     Indication: Pulmonary embolism
  308. AZITHROMYCIN [Suspect]
     Active Substance: AZITHROMYCIN
     Indication: Arteriosclerosis
  309. AZITHROMYCIN [Suspect]
     Active Substance: AZITHROMYCIN
     Indication: Loss of personal independence in daily activities
  310. AZITHROMYCIN [Suspect]
     Active Substance: AZITHROMYCIN
     Indication: Mycotic allergy
  311. AZITHROMYCIN [Suspect]
     Active Substance: AZITHROMYCIN
     Indication: Conjunctivitis allergic
  312. AZITHROMYCIN [Suspect]
     Active Substance: AZITHROMYCIN
     Indication: Anxiety
  313. AZITHROMYCIN [Suspect]
     Active Substance: AZITHROMYCIN
     Indication: Full blood count abnormal
  314. AZITHROMYCIN [Suspect]
     Active Substance: AZITHROMYCIN
     Indication: Therapeutic product effect incomplete
  315. AZITHROMYCIN [Suspect]
     Active Substance: AZITHROMYCIN
     Indication: Pulmonary embolism
  316. AZITHROMYCIN [Suspect]
     Active Substance: AZITHROMYCIN
     Indication: Product used for unknown indication
  317. MONTELUKAST SODIUM [Suspect]
     Active Substance: MONTELUKAST SODIUM
     Indication: Asthma
     Dosage: UNK
     Route: 065
  318. MONTELUKAST SODIUM [Suspect]
     Active Substance: MONTELUKAST SODIUM
     Dosage: UNK UNK, UNKNOWN FREQ.
     Route: 065
  319. FINASTERIDE\TAMSULOSIN [Suspect]
     Active Substance: FINASTERIDE\TAMSULOSIN
     Dosage: UNK
  320. AMOXICILLIN\CLAVULANATE POTASSIUM [Suspect]
     Active Substance: AMOXICILLIN\CLAVULANATE POTASSIUM
     Indication: Product used for unknown indication
     Dosage: UNK
  321. ESCITALOPRAM OXALATE [Suspect]
     Active Substance: ESCITALOPRAM OXALATE
     Indication: Product used for unknown indication
     Dosage: UNK
  322. DILTIAZEM HYDROCHLORIDE [Suspect]
     Active Substance: DILTIAZEM HYDROCHLORIDE
     Indication: Product used for unknown indication
     Dosage: 120 MG
  323. SENNA LEAF [Suspect]
     Active Substance: SENNA LEAF
     Indication: Product used for unknown indication
     Dosage: UNK
     Route: 048
  324. DOXAZOSIN MESYLATE [Suspect]
     Active Substance: DOXAZOSIN MESYLATE
     Indication: Product used for unknown indication
     Dosage: UNK
  325. FUROSEMIDE [Suspect]
     Active Substance: FUROSEMIDE
     Indication: Product used for unknown indication
     Dosage: UNK
     Route: 065
  326. SULFADIAZINE [Suspect]
     Active Substance: SULFADIAZINE
     Indication: Product used for unknown indication
     Dosage: UNK UNK, UNKNOWN FREQ.
     Route: 065
  327. LEVOFLOXACIN [Suspect]
     Active Substance: LEVOFLOXACIN
     Indication: Asthma
     Dosage: 500.000MG QD
     Route: 065
  328. LEVOFLOXACIN [Suspect]
     Active Substance: LEVOFLOXACIN
     Dosage: 3 DF, ONCE DAILY
     Route: 065
  329. LEVOFLOXACIN [Suspect]
     Active Substance: LEVOFLOXACIN
     Dosage: 750 MG, UNKNOWN FREQ.
     Route: 065
  330. FLUTICASONE PROPIONATE\SALMETEROL XINAFOATE [Suspect]
     Active Substance: FLUTICASONE PROPIONATE\SALMETEROL XINAFOATE
     Indication: Asthma
     Route: 065
  331. CHOLECALCIFEROL [Suspect]
     Active Substance: CHOLECALCIFEROL
     Indication: Product used for unknown indication
     Dosage: 120.000MG
     Route: 065
  332. CHOLECALCIFEROL [Suspect]
     Active Substance: CHOLECALCIFEROL
     Dosage: UNK UNK, UNKNOWN FREQ.
     Route: 065
  333. CHOLECALCIFEROL [Suspect]
     Active Substance: CHOLECALCIFEROL
     Dosage: UNK UNK, UNKNOWN FREQ.
     Route: 065
  334. BUDESONIDE [Suspect]
     Active Substance: BUDESONIDE
     Indication: Asthma
     Dosage: UNK UNK, UNKNOWN FREQ.
     Route: 065
  335. BUDESONIDE [Suspect]
     Active Substance: BUDESONIDE
     Route: 048
  336. CALCIUM CARBONATE\CHOLECALCIFEROL [Suspect]
     Active Substance: CALCIUM CARBONATE\CHOLECALCIFEROL
     Indication: Asthma
     Route: 065
  337. CALCIUM CARBONATE\CHOLECALCIFEROL [Suspect]
     Active Substance: CALCIUM CARBONATE\CHOLECALCIFEROL
     Dosage: 120.000MG QD
     Route: 065
  338. CICLESONIDE [Suspect]
     Active Substance: CICLESONIDE
     Indication: Asthma
     Dosage: SPRAY, METEREDDOSE
     Route: 065
  339. APIXABAN [Suspect]
     Active Substance: APIXABAN
     Indication: Asthma
     Route: 065
  340. MOXIFLOXACIN HYDROCHLORIDE [Suspect]
     Active Substance: MOXIFLOXACIN HYDROCHLORIDE
     Indication: Asthma
     Route: 065
  341. APIXABAN [Suspect]
     Active Substance: APIXABAN
     Indication: Asthma
     Dosage: UNK UNK, UNKNOWN FREQ.
     Route: 065
  342. APIXABAN [Suspect]
     Active Substance: APIXABAN
     Dosage: UNK UNK, UNKNOWN FREQ.
     Route: 065
  343. DOXAZOSIN MESYLATE [Suspect]
     Active Substance: DOXAZOSIN MESYLATE
     Indication: Asthma
     Dosage: 4.000MG QD
     Route: 065
  344. DOXAZOSIN MESYLATE [Suspect]
     Active Substance: DOXAZOSIN MESYLATE
     Dosage: 5.000MG QD
     Route: 065
  345. DOXAZOSIN MESYLATE [Suspect]
     Active Substance: DOXAZOSIN MESYLATE
     Dosage: 0.500MG QD
     Route: 065
  346. DOXAZOSIN MESYLATE [Suspect]
     Active Substance: DOXAZOSIN MESYLATE
     Dosage: 5.000MG QD
     Route: 065
  347. DILACOR XR [Suspect]
     Active Substance: DILTIAZEM HYDROCHLORIDE
     Indication: Product used for unknown indication
     Dosage: TABLET (EXTENDED-RELEASE)
     Route: 065
  348. CHOLECALCIFEROL [Suspect]
     Active Substance: CHOLECALCIFEROL
     Indication: Asthma
     Route: 065
  349. CALCIUM LACTATE [Suspect]
     Active Substance: CALCIUM LACTATE
     Indication: Product used for unknown indication
     Route: 065

REACTIONS (3)
  - Arteriosclerosis coronary artery [Fatal]
  - Anxiety [Fatal]
  - Arteriosclerosis [Fatal]
